FAERS Safety Report 25417772 (Version 1)
Quarter: 2025Q2

REPORT INFORMATION
  Report Type: Spontaneous
  Country: CN (occurrence: CN)
  Receive Date: 20250610
  Receipt Date: 20250610
  Transmission Date: 20250716
  Serious: Yes (Hospitalization, Other)
  Sender: SANOFI AVENTIS
  Company Number: CN-SA-2025SA161047

PATIENT
  Age: 50 Year
  Sex: Male

DRUGS (2)
  1. INSULIN GLARGINE [Suspect]
     Active Substance: INSULIN GLARGINE
     Indication: Diabetes mellitus
     Dosage: 6 IU, HS, BEFORE SLEEP
     Route: 058
     Dates: start: 20250430, end: 20250531
  2. INSULIN ASPART [Concomitant]
     Active Substance: INSULIN ASPART
     Indication: Diabetes mellitus
     Dosage: 5-5-5 IU BEFORE THREE MEALS
     Dates: start: 202504

REACTIONS (6)
  - Mouth haemorrhage [Unknown]
  - Eye contusion [Unknown]
  - Hypoglycaemia [Recovered/Resolved]
  - Loss of consciousness [Recovered/Resolved]
  - Unresponsive to stimuli [Recovering/Resolving]
  - Dysphoria [Unknown]

NARRATIVE: CASE EVENT DATE: 20250531
